FAERS Safety Report 7968766-1 (Version None)
Quarter: 2011Q4

REPORT INFORMATION
  Report Type: 
  Country: None (occurrence: None)
  Receive Date: 20111122
  Receipt Date: 20110725
  Transmission Date: 20120403
  Serious: Yes (Other)
  Sender: FDA-Public Use
  Company Number: PHHY2011US66240

PATIENT
  Age: 44 Year
  Sex: Female

DRUGS (4)
  1. GILENYA [Suspect]
     Indication: MULTIPLE SCLEROSIS
     Dosage: 0.5 MG, QD, ORAL
     Route: 048
     Dates: start: 20110225, end: 20110505
  2. VITAMIN D2 (ERGOCALCIFEROL) [Concomitant]
  3. DIAZEPAM [Concomitant]
  4. TOPAMAX [Concomitant]

REACTIONS (8)
  - CONJUNCTIVITIS [None]
  - NASOPHARYNGITIS [None]
  - BLOOD PRESSURE INCREASED [None]
  - PALPITATIONS [None]
  - BACK PAIN [None]
  - HEADACHE [None]
  - DYSPNOEA [None]
  - CYSTITIS [None]
